FAERS Safety Report 10062340 (Version 1)
Quarter: 2014Q2

REPORT INFORMATION
  Report Type: Spontaneous
  Country: US (occurrence: US)
  Receive Date: 20140407
  Receipt Date: 20140407
  Transmission Date: 20141212
  Serious: No
  Sender: FDA-Public Use
  Company Number: US-PFIZER INC-2014094133

PATIENT
  Sex: Female

DRUGS (2)
  1. VORICONAZOLE [Suspect]
     Dosage: UNK
     Route: 042
  2. VORICONAZOLE [Suspect]
     Dosage: UNK
     Route: 048

REACTIONS (1)
  - Visual impairment [Unknown]
